FAERS Safety Report 13858858 (Version 1)
Quarter: 2017Q3

REPORT INFORMATION
  Report Type: Report from Study
  Country: US (occurrence: US)
  Receive Date: 20170811
  Receipt Date: 20170811
  Transmission Date: 20171127
  Serious: Yes (Other)
  Sender: FDA-Public Use
  Company Number: US-SHIRE-US201715624

PATIENT
  Sex: Female

DRUGS (1)
  1. GATTEX [Suspect]
     Active Substance: TEDUGLUTIDE\WATER
     Indication: SHORT-BOWEL SYNDROME
     Dosage: UNK UNK, QOD
     Route: 058
     Dates: start: 20161006

REACTIONS (3)
  - Vomiting [Unknown]
  - Inappropriate schedule of drug administration [Unknown]
  - Liver disorder [Unknown]
